FAERS Safety Report 4317393-6 (Version None)
Quarter: 2004Q1

REPORT INFORMATION
  Report Type: 
  Country: None (occurrence: None)
  Receive Date: 20040312
  Receipt Date: 20040302
  Transmission Date: 20041129
  Serious: Yes (Hospitalization)
  Sender: FDA-Public Use
  Company Number: 04P-163-0252045-00

PATIENT
  Age: 33 Year
  Sex: Female

DRUGS (4)
  1. KALETRA [Suspect]
     Indication: HIV INFECTION
     Dosage: PER ORAL
     Route: 048
     Dates: start: 20030901
  2. TENOFOVIR [Concomitant]
  3. DIDANOSINE [Concomitant]
  4. LAMIVUDINE [Concomitant]

REACTIONS (5)
  - DIABETES INSIPIDUS [None]
  - LIPASE INCREASED [None]
  - RENAL FAILURE [None]
  - VOMITING [None]
  - WEIGHT DECREASED [None]
